FAERS Safety Report 18717860 (Version 1)
Quarter: 2021Q1

REPORT INFORMATION
  Report Type: Spontaneous
  Country: US (occurrence: US)
  Receive Date: 20210108
  Receipt Date: 20210108
  Transmission Date: 20210419
  Serious: Yes (Hospitalization)
  Sender: FDA-Public Use
  Company Number: None

PATIENT
  Age: 72 Year
  Sex: Female
  Weight: 72.6 kg

DRUGS (13)
  1. ASCORBIC ACID. [Concomitant]
     Active Substance: ASCORBIC ACID
  2. DONEPEZIL. [Concomitant]
     Active Substance: DONEPEZIL
  3. FISH OIL [Concomitant]
     Active Substance: FISH OIL
  4. BAMLANIVIMAB FOR EUA [Suspect]
     Active Substance: BAMLANIVIMAB
     Indication: COVID-19
     Dates: start: 20201214, end: 20201214
  5. ASPIRIN. [Concomitant]
     Active Substance: ASPIRIN
  6. MEMANTINE. [Concomitant]
     Active Substance: MEMANTINE
  7. EVOLOCUMAB [Concomitant]
     Active Substance: EVOLOCUMAB
  8. EZETIMIBE. [Concomitant]
     Active Substance: EZETIMIBE
  9. VITAMIN E [Concomitant]
     Active Substance: .ALPHA.-TOCOPHEROL
  10. CIPROFLOXACIN. [Concomitant]
     Active Substance: CIPROFLOXACIN
  11. LOSARTAN. [Concomitant]
     Active Substance: LOSARTAN
  12. TRAZODONE [Concomitant]
     Active Substance: TRAZODONE HYDROCHLORIDE
  13. LEVOTHYROXINE. [Concomitant]
     Active Substance: LEVOTHYROXINE

REACTIONS (5)
  - Pneumonia [None]
  - Condition aggravated [None]
  - Confusional state [None]
  - Oxygen saturation decreased [None]
  - Cerebral atrophy [None]

NARRATIVE: CASE EVENT DATE: 20210104
